FAERS Safety Report 5931596-6 (Version None)
Quarter: 2008Q4

REPORT INFORMATION
  Report Type: 
  Country: None (occurrence: None)
  Receive Date: 20081027
  Receipt Date: 20081014
  Transmission Date: 20090506
  Serious: Yes (Hospitalization)
  Sender: FDA-Public Use
  Company Number: ES-ELI_LILLY_AND_COMPANY-ES200810003693

PATIENT
  Age: 71 Year
  Sex: Female

DRUGS (2)
  1. FORTEO [Suspect]
     Indication: OSTEOPOROSIS
     Dosage: 20 UG, UNKNOWN
     Route: 058
     Dates: start: 20080601, end: 20080925
  2. DACORTIN [Concomitant]

REACTIONS (4)
  - ABDOMINAL INFECTION [None]
  - ABDOMINAL PAIN [None]
  - ANORECTAL DISORDER [None]
  - INTESTINAL OBSTRUCTION [None]
